FAERS Safety Report 7686138-4 (Version None)
Quarter: 2011Q3

REPORT INFORMATION
  Report Type: 
  Country: None (occurrence: None)
  Receive Date: 20110811
  Receipt Date: 20110729
  Transmission Date: 20111222
  Serious: Yes (Death, Other)
  Sender: FDA-Public Use
  Company Number: AUR-APL-2011-01531

PATIENT
  Age: 57 Year
  Sex: Female

DRUGS (5)
  1. METFORMIN HCL [Suspect]
     Indication: DIABETES MELLITUS
     Dosage: 3 GM (1 GM, 3 IN 1 D), ORAL
     Route: 048
  2. ACTOS [Concomitant]
  3. TEGRETOL [Concomitant]
  4. DIOVAN COMP (VALSARTAN) [Concomitant]
  5. ZOCOR [Concomitant]

REACTIONS (13)
  - BODY TEMPERATURE DECREASED [None]
  - COLD SWEAT [None]
  - DIZZINESS [None]
  - CARDIAC ARREST [None]
  - SHOCK [None]
  - BLOOD GLUCOSE INCREASED [None]
  - DIARRHOEA [None]
  - OVERWEIGHT [None]
  - DIABETIC NEPHROPATHY [None]
  - HAEMOGLOBIN DECREASED [None]
  - LACTIC ACIDOSIS [None]
  - VOMITING [None]
  - RENAL IMPAIRMENT [None]
